FAERS Safety Report 25574767 (Version 2)
Quarter: 2025Q3

REPORT INFORMATION
  Report Type: Report from Study
  Country: US (occurrence: US)
  Receive Date: 20250718
  Receipt Date: 20250814
  Transmission Date: 20251021
  Serious: Yes (Other)
  Sender: DECIPHERA PHARMACEUTICALS
  Company Number: US-DECIPHERA PHARMACEUTICALS LLC-2025US000829

PATIENT
  Age: 63 Year
  Sex: Male
  Weight: 56.422 kg

DRUGS (1)
  1. QINLOCK [Suspect]
     Active Substance: RIPRETINIB
     Indication: Gastrointestinal stromal tumour
     Dosage: 150 MILLIGRAM, QD
     Route: 048
     Dates: start: 20241031

REACTIONS (4)
  - Malignant neoplasm progression [Unknown]
  - Arthropathy [Unknown]
  - Fatigue [Unknown]
  - Muscle spasms [Unknown]
